FAERS Safety Report 9337058 (Version 3)
Quarter: 2013Q3

REPORT INFORMATION
  Report Type: Spontaneous
  Country: TW (occurrence: TW)
  Receive Date: 20130607
  Receipt Date: 20130909
  Transmission Date: 20140515
  Serious: Yes (Other)
  Sender: FDA-Public Use
  Company Number: TW-ABBOTT-13P-153-1101270-00

PATIENT
  Age: 40 Year
  Sex: Female
  Weight: 80 kg

DRUGS (5)
  1. HUMIRA [Suspect]
     Indication: PSORIATIC ARTHROPATHY
     Route: 058
     Dates: start: 20110825
  2. HUMIRA [Suspect]
     Dates: start: 20130704
  3. MTX [Concomitant]
     Indication: PSORIASIS
     Route: 048
     Dates: start: 20110702, end: 20120109
  4. SALAZINE [Concomitant]
     Indication: PSORIASIS
     Route: 048
     Dates: start: 20110908
  5. ARHEUMA [Concomitant]
     Indication: PSORIASIS
     Route: 048
     Dates: start: 20110825, end: 20130509

REACTIONS (1)
  - Liver function test abnormal [Recovered/Resolved]
